FAERS Safety Report 21381208 (Version 1)
Quarter: 2022Q3

REPORT INFORMATION
  Report Type: Spontaneous
  Country: CN (occurrence: CN)
  Receive Date: 20220927
  Receipt Date: 20220927
  Transmission Date: 20221026
  Serious: Yes (Other)
  Sender: FDA-Public Use
  Company Number: CN-SA-2022SA393545

PATIENT
  Age: 37 Year
  Sex: Female
  Weight: 70 kg

DRUGS (6)
  1. HYDROCHLOROTHIAZIDE\IRBESARTAN [Suspect]
     Active Substance: HYDROCHLOROTHIAZIDE\IRBESARTAN
     Indication: Hypertension
     Dosage: 150 MG, QD
     Route: 048
     Dates: start: 20220903, end: 20220905
  2. HYDROCHLOROTHIAZIDE\IRBESARTAN [Suspect]
     Active Substance: HYDROCHLOROTHIAZIDE\IRBESARTAN
     Dosage: 150 MG, QD
     Route: 048
     Dates: start: 20220906, end: 20220908
  3. CLOPIDOGREL BISULFATE [Suspect]
     Active Substance: CLOPIDOGREL BISULFATE
     Indication: Ischaemia
     Dosage: 75 MG, QD
     Route: 048
     Dates: start: 20220903, end: 20220905
  4. CLOPIDOGREL BISULFATE [Suspect]
     Active Substance: CLOPIDOGREL BISULFATE
     Dosage: 75 MG, QD
     Route: 048
     Dates: start: 20220906, end: 20220908
  5. METOPROLOL SUCCINATE [Concomitant]
     Active Substance: METOPROLOL SUCCINATE
     Indication: Hypertension
     Dosage: 47.5 MG, QD
     Route: 048
     Dates: start: 20220903, end: 20220908
  6. ROSUVASTATIN CALCIUM [Concomitant]
     Active Substance: ROSUVASTATIN CALCIUM
     Indication: Ischaemia
     Dosage: 10 MG, QD
     Route: 048
     Dates: start: 20220903, end: 20220908

REACTIONS (3)
  - Night sweats [Recovering/Resolving]
  - Abdominal pain [Recovering/Resolving]
  - Lethargy [Recovering/Resolving]

NARRATIVE: CASE EVENT DATE: 20220904
